FAERS Safety Report 24058441 (Version 1)
Quarter: 2024Q3

REPORT INFORMATION
  Report Type: Other
  Country: FR (occurrence: FR)
  Receive Date: 20240708
  Receipt Date: 20240708
  Transmission Date: 20241017
  Serious: Yes (Other)
  Sender: ZYDUS PHARM
  Company Number: None

PATIENT

DRUGS (3)
  1. BISOPROLOL [Suspect]
     Active Substance: BISOPROLOL\BISOPROLOL FUMARATE
     Indication: Mitral valve prolapse
     Dosage: 10 MILLIGRAM, QD
     Route: 064
     Dates: start: 20240110, end: 20240318
  2. NADOLOL [Suspect]
     Active Substance: NADOLOL
     Indication: Mitral valve prolapse
     Dosage: 80 MILLIGRAM
     Route: 064
     Dates: start: 20230817, end: 20240425
  3. INNOHEP [Suspect]
     Active Substance: TINZAPARIN SODIUM
     Indication: Thrombosis prophylaxis
     Dosage: 4500 INTERNATIONAL UNIT, QD
     Route: 064
     Dates: start: 20240215, end: 20240312

REACTIONS (3)
  - Foetal growth restriction [Recovered/Resolved]
  - Term birth [Recovered/Resolved]
  - Foetal exposure during pregnancy [Recovered/Resolved]

NARRATIVE: CASE EVENT DATE: 20230817
